FAERS Safety Report 7799941-7 (Version None)
Quarter: 2011Q4

REPORT INFORMATION
  Report Type: 
  Country: None (occurrence: None)
  Receive Date: 20111006
  Receipt Date: 20110929
  Transmission Date: 20120403
  Serious: Yes (Other)
  Sender: FDA-Public Use
  Company Number: BE-TEVA-303200ISR

PATIENT
  Age: 53 Year
  Sex: Female

DRUGS (5)
  1. FEMODENE [Concomitant]
  2. OMEPRAZOLE [Concomitant]
  3. COPAXONE [Suspect]
     Indication: MULTIPLE SCLEROSIS
     Dosage: 2.8571 MILLIGRAM;
     Route: 058
  4. FENOFIBRATE [Concomitant]
  5. ISOTEN [Concomitant]

REACTIONS (2)
  - SPINAL FRACTURE [None]
  - MULTIPLE MYELOMA [None]
